FAERS Safety Report 20820679 (Version 2)
Quarter: 2022Q3

REPORT INFORMATION
  Report Type: Spontaneous
  Country: US (occurrence: US)
  Receive Date: 20220512
  Receipt Date: 20220729
  Transmission Date: 20221027
  Serious: No
  Sender: FDA-Public Use
  Company Number: US-NOVARTISTESTPH-NVSC2022US108160

PATIENT
  Sex: Female

DRUGS (1)
  1. KESIMPTA [Suspect]
     Active Substance: OFATUMUMAB
     Indication: Product used for unknown indication
     Dosage: UNK
     Route: 065

REACTIONS (4)
  - Fatigue [Unknown]
  - Respiratory disorder [Unknown]
  - Infection [Unknown]
  - Sinusitis [Unknown]
